FAERS Safety Report 6903132-9 (Version None)
Quarter: 2010Q3

REPORT INFORMATION
  Report Type: 
  Country: None (occurrence: None)
  Receive Date: 20100803
  Receipt Date: 20080610
  Transmission Date: 20110219
  Serious: No
  Sender: FDA-Public Use
  Company Number: US-PFIZER INC-2008046465

PATIENT
  Sex: Female
  Weight: 70.9 kg

DRUGS (6)
  1. LYRICA [Suspect]
     Indication: FIBROMYALGIA
     Dates: start: 20080101
  2. ATIVAN [Concomitant]
  3. CELEXA [Concomitant]
  4. GLIPIZIDE [Concomitant]
  5. PREDNISONE [Concomitant]
  6. PRILOSEC [Concomitant]

REACTIONS (3)
  - DIZZINESS [None]
  - DRUG INEFFECTIVE [None]
  - PAIN [None]
